FAERS Safety Report 4814174-1 (Version None)
Quarter: 2005Q4

REPORT INFORMATION
  Report Type: 
  Country: None (occurrence: None)
  Receive Date: 20051028
  Receipt Date: 20050714
  Transmission Date: 20060501
  Serious: No
  Sender: FDA-Public Use
  Company Number: US-GLAXOSMITHKLINE-A0566229A

PATIENT
  Age: 64 Year
  Sex: Female

DRUGS (8)
  1. ADVAIR DISKUS 100/50 [Suspect]
     Indication: ASTHMA
     Dosage: 1PUFF TWICE PER DAY
     Route: 055
  2. PREDNISONE [Concomitant]
  3. THEOPHYLLINE [Concomitant]
  4. ALBUTEROL [Concomitant]
  5. ATROVENT [Concomitant]
  6. FOSAMAX [Concomitant]
  7. ISOSORBIDE [Concomitant]
  8. LIPITOR [Concomitant]

REACTIONS (2)
  - DYSPHONIA [None]
  - HYPOAESTHESIA [None]
